FAERS Safety Report 18067453 (Version 2)
Quarter: 2020Q3

REPORT INFORMATION
  Report Type: Spontaneous
  Country: US (occurrence: US)
  Receive Date: 20200724
  Receipt Date: 20200819
  Transmission Date: 20201103
  Serious: No
  Sender: FDA-Public Use
  Company Number: US-BIOGEN-2020BI00900264

PATIENT
  Sex: Female

DRUGS (1)
  1. TECFIDERA [Suspect]
     Active Substance: DIMETHYL FUMARATE
     Indication: MULTIPLE SCLEROSIS
     Route: 065
     Dates: start: 20200519

REACTIONS (6)
  - Eyelid function disorder [Unknown]
  - Headache [Unknown]
  - Hemianaesthesia [Unknown]
  - Abdominal pain [Unknown]
  - Facial spasm [Unknown]
  - Aphasia [Unknown]
